FAERS Safety Report 7180122-5 (Version None)
Quarter: 2010Q4

REPORT INFORMATION
  Report Type: 
  Country: None (occurrence: None)
  Receive Date: 20101123
  Receipt Date: 20100729
  Transmission Date: 20110411
  Serious: No
  Sender: FDA-Public Use
  Company Number: 016649

PATIENT
  Sex: Female
  Weight: 63.5 kg

DRUGS (3)
  1. CIMZIA [Suspect]
     Indication: CROHN'S DISEASE
     Dosage: (TWO VIALS OF UNSPECIFIED DOSE EVERY MONTH SUBCUTANEOUS)
     Route: 058
     Dates: start: 20100404
  2. ABILIFY [Concomitant]
  3. PAXIL [Concomitant]

REACTIONS (2)
  - BLOOD POTASSIUM DECREASED [None]
  - FREQUENT BOWEL MOVEMENTS [None]
